FAERS Safety Report 8839484 (Version 3)
Quarter: 2012Q4

REPORT INFORMATION
  Report Type: 
  Country: JP (occurrence: JP)
  Receive Date: 20121015
  Receipt Date: 20121105
  Transmission Date: 20130627
  Serious: Yes (Hospitalization)
  Sender: FDA-Public Use
  Company Number: JP-BAYER-2012-107258

PATIENT
  Age: 86 Year
  Sex: Male

DRUGS (7)
  1. BAYASPIRIN [Suspect]
     Indication: CORONARY ARTERY RESTENOSIS
     Dosage: UNK
     Route: 048
  2. BAYASPIRIN [Suspect]
     Indication: ANGINA PECTORIS
  3. CLOPIDOGREL [Suspect]
     Indication: IN-STENT CORONARY ARTERY RESTENOSIS
     Dosage: UNK
     Route: 048
  4. CLOPIDOGREL [Suspect]
     Indication: ANGINA PECTORIS
     Dosage: UNK
  5. WARFARIN [Suspect]
     Indication: IN-STENT CORONARY ARTERY RESTENOSIS
     Dosage: 10000 unit/day
     Route: 048
  6. WARFARIN [Suspect]
     Indication: ANGINA PECTORIS
     Dosage: UNK
  7. RED BLOOD CELLS, CONCENTRATED [Concomitant]
     Dosage: 4 DF, UNK

REACTIONS (2)
  - Mediastinal haematoma [None]
  - Cardiac tamponade [None]
